FAERS Safety Report 19698340 (Version 1)
Quarter: 2021Q3

REPORT INFORMATION
  Report Type: Spontaneous
  Country: HR (occurrence: HR)
  Receive Date: 20210813
  Receipt Date: 20210813
  Transmission Date: 20211014
  Serious: Yes (Other)
  Sender: FDA-Public Use
  Company Number: HR-TEVA-2021-HR-1940774

PATIENT
  Sex: Female
  Weight: 55 kg

DRUGS (4)
  1. SULPIRID [Suspect]
     Active Substance: SULPIRIDE
     Dosage: 1 DF = 1 TABLET, 36 DF
     Route: 048
     Dates: start: 202105, end: 202105
  2. IBUPROFEN. [Suspect]
     Active Substance: IBUPROFEN
     Dosage: APPROX. 300 MG / KG, 16 GRAM
     Route: 048
     Dates: start: 202105, end: 202105
  3. CERSON [Suspect]
     Active Substance: NITRAZEPAM
     Dosage: 170 MG
     Route: 048
     Dates: start: 202105, end: 202105
  4. ALPRAZOLAM. [Suspect]
     Active Substance: ALPRAZOLAM
     Dosage: 30 MG
     Route: 048
     Dates: start: 202105, end: 202105

REACTIONS (2)
  - Intentional overdose [Unknown]
  - Suicide attempt [Unknown]

NARRATIVE: CASE EVENT DATE: 202105
